FAERS Safety Report 8176551-3 (Version None)
Quarter: 2012Q1

REPORT INFORMATION
  Report Type: 
  Country: None (occurrence: None)
  Receive Date: 20120301
  Receipt Date: 20120217
  Transmission Date: 20120608
  Serious: Yes (Hospitalization, Other)
  Sender: FDA-Public Use
  Company Number: US-BAYER-200943717NA

PATIENT
  Age: 18 Year
  Sex: Female
  Weight: 82.54 kg

DRUGS (10)
  1. YAZ [Suspect]
     Indication: CONTRACEPTION
     Dosage: UNK
     Route: 048
     Dates: start: 20070501, end: 20080101
  2. MOTRIN [Concomitant]
  3. ATIVAN [Concomitant]
     Dosage: UNK
     Dates: start: 20080104
  4. ASPIRIN [Concomitant]
  5. REGLAN [Concomitant]
     Dosage: UNK
     Dates: start: 20080104
  6. FLEXERIL [Concomitant]
     Dosage: UNK
     Dates: start: 20080104
  7. YAZ [Suspect]
     Route: 048
  8. ADVIL COLD AND SINUS [Concomitant]
  9. NORCO [Concomitant]
     Dosage: UNK
     Dates: start: 20080104
  10. CIPROFLOXACIN HCL [Concomitant]
     Dosage: 500 MG, BID

REACTIONS (4)
  - THROMBOSIS [None]
  - SUPERIOR SAGITTAL SINUS THROMBOSIS [None]
  - OSTEOCHONDROSIS [None]
  - CEREBROVASCULAR ACCIDENT [None]
